FAERS Safety Report 21026026 (Version 1)
Quarter: 2022Q2

REPORT INFORMATION
  Report Type: Spontaneous
  Country: FR (occurrence: FR)
  Receive Date: 20220630
  Receipt Date: 20220630
  Transmission Date: 20220721
  Serious: Yes (Hospitalization)
  Sender: FDA-Public Use
  Company Number: None

PATIENT
  Age: 64 Year
  Sex: Male

DRUGS (3)
  1. GENTAMICIN [Suspect]
     Active Substance: GENTAMICIN
     Indication: Endocarditis
     Route: 042
     Dates: start: 20220114, end: 20220130
  2. RIFAMPIN [Suspect]
     Active Substance: RIFAMPIN
     Indication: Endocarditis
     Dosage: 600MG X2 PER DAY
     Route: 048
     Dates: start: 20220114, end: 20220203
  3. CLOXACILLIN [Suspect]
     Active Substance: CLOXACILLIN
     Indication: Endocarditis
     Route: 042
     Dates: start: 20220114, end: 20220203

REACTIONS (1)
  - Acute kidney injury [Recovered/Resolved]

NARRATIVE: CASE EVENT DATE: 20220131
